FAERS Safety Report 5301877-8 (Version None)
Quarter: 2007Q2

REPORT INFORMATION
  Report Type: 
  Country: None (occurrence: None)
  Receive Date: 20070419
  Receipt Date: 20070411
  Transmission Date: 20071010
  Serious: Yes (Hospitalization)
  Sender: FDA-Public Use
  Company Number: US-ROCHE-492340

PATIENT
  Age: 49 Year
  Sex: Male

DRUGS (2)
  1. PEGASYS [Suspect]
     Route: 065
     Dates: start: 20040615, end: 20040615
  2. RIBAVIRIN [Suspect]
     Route: 065
     Dates: start: 20040615, end: 20040615

REACTIONS (1)
  - NON-HODGKIN'S LYMPHOMA [None]
